FAERS Safety Report 4788577-8 (Version None)
Quarter: 2005Q4

REPORT INFORMATION
  Report Type: 
  Country: None (occurrence: None)
  Receive Date: 20051005
  Receipt Date: 20051005
  Transmission Date: 20060501
  Serious: Yes (Life-Threatening)
  Sender: FDA-Public Use
  Company Number: None

PATIENT
  Age: 24 Year
  Sex: Male
  Weight: 131.5431 kg

DRUGS (4)
  1. MEPHYTON [Suspect]
     Dosage: 1 MG IV
     Route: 042
     Dates: start: 20050318
  2. WARFARIN SODIUM [Concomitant]
  3. INSULIN [Concomitant]
  4. AMLODIPINE [Concomitant]

REACTIONS (5)
  - BRONCHOSPASM [None]
  - EYE DISORDER [None]
  - HYPERHIDROSIS [None]
  - INFUSION RELATED REACTION [None]
  - THROAT TIGHTNESS [None]
